FAERS Safety Report 19200257 (Version 1)
Quarter: 2021Q2

REPORT INFORMATION
  Report Type: Spontaneous
  Country: US (occurrence: US)
  Receive Date: 20210429
  Receipt Date: 20210429
  Transmission Date: 20210717
  Serious: No
  Sender: FDA-Public Use
  Company Number: None

PATIENT
  Age: 56 Year
  Sex: Female

DRUGS (2)
  1. AMBRISENTAN [Suspect]
     Active Substance: AMBRISENTAN
     Route: 048
  2. AMBRISENTAN [Suspect]
     Active Substance: AMBRISENTAN

REACTIONS (3)
  - Headache [None]
  - Diarrhoea [None]
  - Pain in jaw [None]

NARRATIVE: CASE EVENT DATE: 20210428
